FAERS Safety Report 9415311 (Version 1)
Quarter: 2013Q3

REPORT INFORMATION
  Report Type: Spontaneous
  Country: GB (occurrence: GB)
  Receive Date: 20130723
  Receipt Date: 20130723
  Transmission Date: 20140515
  Serious: Yes (Life-Threatening, Hospitalization)
  Sender: FDA-Public Use
  Company Number: GB-BRISTOL-MYERS SQUIBB COMPANY-19114008

PATIENT
  Age: 74 Year
  Sex: Male
  Weight: 69 kg

DRUGS (1)
  1. SAXAGLIPTIN [Suspect]

REACTIONS (1)
  - Pancreatitis [Recovering/Resolving]
